FAERS Safety Report 19707752 (Version 1)
Quarter: 2021Q3

REPORT INFORMATION
  Report Type: Report from Study
  Country: US (occurrence: US)
  Receive Date: 20210817
  Receipt Date: 20210817
  Transmission Date: 20211014
  Serious: Yes (Other)
  Sender: FDA-Public Use
  Company Number: US-JAZZ-2021-US-014705

PATIENT
  Sex: Female

DRUGS (6)
  1. XYREM [Suspect]
     Active Substance: SODIUM OXYBATE
     Indication: NARCOLEPSY
     Dosage: 1.5 GRAM, BID
     Route: 048
     Dates: start: 202101, end: 202101
  2. ARAZLO [Concomitant]
     Active Substance: TAZAROTENE
  3. XYREM [Suspect]
     Active Substance: SODIUM OXYBATE
     Dosage: DOSE ADJUSTMENT
     Route: 048
     Dates: start: 202101, end: 202104
  4. TYLENOL [Concomitant]
     Active Substance: ACETAMINOPHEN
  5. XYREM [Suspect]
     Active Substance: SODIUM OXYBATE
     Dosage: 3.5 GRAM, BID
     Route: 048
     Dates: start: 202104
  6. MOTRIN [Concomitant]
     Active Substance: IBUPROFEN

REACTIONS (4)
  - Mitral valve incompetence [Not Recovered/Not Resolved]
  - Acne cystic [Unknown]
  - Diabetes mellitus [Unknown]
  - Eczema [Unknown]
